FAERS Safety Report 14585071 (Version 1)
Quarter: 2018Q1

REPORT INFORMATION
  Report Type: Report from Study
  Country: None (occurrence: CO)
  Receive Date: 20180301
  Receipt Date: 20180301
  Transmission Date: 20180509
  Serious: Yes (Hospitalization, Other)
  Sender: FDA-Public Use
  Company Number: CO-ABBVIE-18K-036-2273295-00

PATIENT
  Age: 67 Year
  Sex: Female

DRUGS (1)
  1. HUMIRA [Suspect]
     Active Substance: ADALIMUMAB
     Indication: RHEUMATOID ARTHRITIS
     Route: 058
     Dates: start: 20081205, end: 20180102

REACTIONS (3)
  - Spinal osteoarthritis [Recovering/Resolving]
  - Procedural complication [Unknown]
  - Monoplegia [Unknown]

NARRATIVE: CASE EVENT DATE: 201712
